FAERS Safety Report 10939559 (Version 2)
Quarter: 2015Q2

REPORT INFORMATION
  Report Type: Spontaneous
  Country: US (occurrence: US)
  Receive Date: 20150322
  Receipt Date: 20150524
  Transmission Date: 20150821
  Serious: No
  Sender: FDA-Public Use
  Company Number: US-JNJFOC-20140307486

PATIENT
  Age: 58 Year
  Sex: Male
  Weight: 147 kg

DRUGS (12)
  1. CANAGLIFLOZIN [Suspect]
     Active Substance: CANAGLIFLOZIN
     Indication: PRODUCT USED FOR UNKNOWN INDICATION
     Route: 048
  2. ATORVASTATIN [Concomitant]
     Active Substance: ATORVASTATIN
  3. FENOFIBRATE. [Concomitant]
     Active Substance: FENOFIBRATE
  4. DILTIAZEM [Concomitant]
     Active Substance: DILTIAZEM
  5. FUROSEMIDE. [Concomitant]
     Active Substance: FUROSEMIDE
  6. INSULIN [Concomitant]
     Active Substance: INSULIN NOS
  7. LOSARTAN [Concomitant]
     Active Substance: LOSARTAN
  8. INSULIN [Concomitant]
     Active Substance: INSULIN NOS
  9. INSULIN [Concomitant]
     Active Substance: INSULIN NOS
  10. CANAGLIFLOZIN [Suspect]
     Active Substance: CANAGLIFLOZIN
     Indication: PRODUCT USED FOR UNKNOWN INDICATION
     Route: 048
  11. INSULIN [Concomitant]
     Active Substance: INSULIN NOS
     Dates: start: 2006
  12. DILTIAZEM [Concomitant]
     Active Substance: DILTIAZEM

REACTIONS (3)
  - Urine output increased [Unknown]
  - Hypoglycaemia [Unknown]
  - Weight decreased [Unknown]
